FAERS Safety Report 8242953-X (Version None)
Quarter: 2012Q1

REPORT INFORMATION
  Report Type: 
  Country: None (occurrence: None)
  Receive Date: 20120329
  Receipt Date: 20120329
  Transmission Date: 20120608
  Serious: Yes (Other)
  Sender: FDA-Public Use
  Company Number: None

PATIENT
  Age: 10 Year
  Sex: Female
  Weight: 23.586 kg

DRUGS (1)
  1. INTUNIV [Suspect]
     Indication: ATTENTION DEFICIT/HYPERACTIVITY DISORDER
     Dosage: 1.0 MG
     Route: 048
     Dates: start: 20120322, end: 20120326

REACTIONS (7)
  - DECREASED APPETITE [None]
  - HYPOTENSION [None]
  - DIARRHOEA [None]
  - ABDOMINAL DISCOMFORT [None]
  - CHEST PAIN [None]
  - HEART RATE DECREASED [None]
  - DIZZINESS [None]
